FAERS Safety Report 19642807 (Version 2)
Quarter: 2022Q3

REPORT INFORMATION
  Report Type: Spontaneous
  Country: US (occurrence: US)
  Receive Date: 20210730
  Receipt Date: 20220902
  Transmission Date: 20221027
  Serious: Yes (Other)
  Sender: FDA-Public Use
  Company Number: US-PFIZER INC-202100936539

PATIENT
  Sex: Female

DRUGS (2)
  1. GABAPENTIN [Suspect]
     Active Substance: GABAPENTIN
     Indication: Neuralgia
     Dosage: 1200 MG
     Dates: start: 2020
  2. GABAPENTIN [Suspect]
     Active Substance: GABAPENTIN
     Dosage: 1200 MG

REACTIONS (21)
  - Drug dependence [Unknown]
  - Suicide attempt [Unknown]
  - Drug ineffective [Unknown]
  - Product prescribing error [Unknown]
  - Discomfort [Unknown]
  - Pain [Unknown]
  - Depressed mood [Unknown]
  - Gait disturbance [Unknown]
  - Decreased appetite [Unknown]
  - Peripheral swelling [Unknown]
  - Drug hypersensitivity [Unknown]
  - Headache [Unknown]
  - Muscular weakness [Unknown]
  - Malaise [Unknown]
  - Muscle spasms [Unknown]
  - Rash [Unknown]
  - Sleep disorder [Unknown]
  - Tinnitus [Unknown]
  - Heart rate abnormal [Unknown]
  - Illness [Unknown]
  - Withdrawal syndrome [Unknown]
